FAERS Safety Report 8866689 (Version 1)
Quarter: 2012Q4

REPORT INFORMATION
  Report Type: 
  Country: US (occurrence: US)
  Receive Date: 20121025
  Receipt Date: 20121025
  Transmission Date: 20130627
  Serious: No
  Sender: FDA-Public Use
  Company Number: US-AMGEN-USASP2012012996

PATIENT
  Sex: Female
  Weight: 56.69 kg

DRUGS (4)
  1. ENBREL [Suspect]
     Indication: PRODUCT USED FOR UNKNOWN INDICATION
     Dosage: QW
     Route: 058
  2. METHOTREXATE [Concomitant]
  3. CLONAZEPAM [Concomitant]
     Dosage: 0.5 mg, UNK
  4. DOXEPIN HCL [Concomitant]
     Dosage: 10 mg, UNK

REACTIONS (3)
  - Injection site swelling [Unknown]
  - Injection site pruritus [Unknown]
  - Injection site erythema [Unknown]
